FAERS Safety Report 23197229 (Version 2)
Quarter: 2024Q1

REPORT INFORMATION
  Report Type: Report from Study
  Country: BE (occurrence: BE)
  Receive Date: 20231117
  Receipt Date: 20240102
  Transmission Date: 20240410
  Serious: Yes (Other)
  Sender: FDA-Public Use
  Company Number: BE-BEH-2023165425

PATIENT
  Sex: Female

DRUGS (2)
  1. HIZENTRA [Suspect]
     Active Substance: HUMAN IMMUNOGLOBULIN G
     Indication: Chronic inflammatory demyelinating polyradiculoneuropathy
     Dosage: 22 GRAM, QW
     Route: 058
     Dates: end: 202309
  2. PRIVIGEN [Suspect]
     Active Substance: HUMAN IMMUNOGLOBULIN G
     Indication: Chronic inflammatory demyelinating polyradiculoneuropathy
     Dosage: UNK
     Route: 042
     Dates: start: 202309

REACTIONS (6)
  - Chronic inflammatory demyelinating polyradiculoneuropathy [Unknown]
  - Pain in extremity [Unknown]
  - Gait disturbance [Unknown]
  - Chronic inflammatory demyelinating polyradiculoneuropathy [Recovering/Resolving]
  - Pain in extremity [Recovering/Resolving]
  - Gait disturbance [Recovering/Resolving]

NARRATIVE: CASE EVENT DATE: 20230101
